FAERS Safety Report 12986696 (Version 5)
Quarter: 2017Q1

REPORT INFORMATION
  Report Type: Report from Study
  Country: US (occurrence: US)
  Receive Date: 20161130
  Receipt Date: 20170223
  Transmission Date: 20170428
  Serious: Yes (Hospitalization, Other)
  Sender: FDA-Public Use
  Company Number: US-GILEAD-2016-0246191

PATIENT
  Age: 82 Year
  Sex: Male

DRUGS (2)
  1. REMODULIN [Concomitant]
     Active Substance: TREPROSTINIL
  2. AMBRISENTAN [Suspect]
     Active Substance: AMBRISENTAN
     Indication: PRODUCT USED FOR UNKNOWN INDICATION
     Dosage: 10 MG, QD
     Route: 065

REACTIONS (8)
  - Infusion site discharge [Unknown]
  - Prostatic specific antigen increased [Unknown]
  - Headache [Unknown]
  - Renal mass [Unknown]
  - Peritoneal disorder [Unknown]
  - Prostate cancer [Not Recovered/Not Resolved]
  - Nausea [Unknown]
  - Vomiting [Unknown]
